FAERS Safety Report 13086307 (Version 1)
Quarter: 2017Q1

REPORT INFORMATION
  Report Type: Spontaneous
  Country: US (occurrence: US)
  Receive Date: 20170104
  Receipt Date: 20170104
  Transmission Date: 20170428
  Serious: No
  Sender: FDA-Public Use
  Company Number: US-MISSION PHARMACAL COMPANY-1061535

PATIENT
  Age: 42 Year
  Sex: Female

DRUGS (3)
  1. TYLENOL [Concomitant]
     Active Substance: ACETAMINOPHEN
     Route: 065
  2. IBUPROFEN. [Concomitant]
     Active Substance: IBUPROFEN
     Route: 065
  3. THIOLA [Suspect]
     Active Substance: TIOPRONIN
     Indication: CYSTINURIA
     Route: 065
     Dates: start: 20160918

REACTIONS (2)
  - Renal pain [Unknown]
  - Back pain [Unknown]
